FAERS Safety Report 4904169-1 (Version None)
Quarter: 2006Q1

REPORT INFORMATION
  Report Type: 
  Country: None (occurrence: None)
  Receive Date: 20060208
  Receipt Date: 20050622
  Transmission Date: 20060701
  Serious: No
  Sender: FDA-Public Use
  Company Number: US-GLAXOSMITHKLINE-A0563793A

PATIENT
  Age: 45 Year
  Sex: Male

DRUGS (4)
  1. PAXIL [Suspect]
     Indication: DEPRESSION
     Dosage: 12.5MG PER DAY
     Route: 048
     Dates: end: 20050101
  2. DEPAKOTE [Concomitant]
  3. BUSPAR [Concomitant]
  4. XANAX [Concomitant]
     Route: 065

REACTIONS (1)
  - PANIC ATTACK [None]
